FAERS Safety Report 10323386 (Version 2)
Quarter: 2015Q1

REPORT INFORMATION
  Report Type: Other
  Country: US (occurrence: US)
  Receive Date: 20140720
  Receipt Date: 20150211
  Transmission Date: 20150720
  Serious: Yes (Death, Hospitalization, Other)
  Sender: FDA-Public Use
  Company Number: US-GSKPPD-2014GSK028922

PATIENT
  Age: 59 Year
  Sex: Male

DRUGS (5)
  1. AVANDIA [Suspect]
     Active Substance: ROSIGLITAZONE MALEATE
     Indication: DIABETES MELLITUS
     Dosage: DATE OF AVANDIA USE COULD NOT BE CONFIRMED IN RECORDS REVIEWED.
     Route: 048
  2. CATAPRES [Concomitant]
     Active Substance: CLONIDINE HYDROCHLORIDE
  3. BUMEX [Concomitant]
     Active Substance: BUMETANIDE
  4. TENORMIN [Concomitant]
     Active Substance: ATENOLOL
  5. ASPIRIN. [Concomitant]
     Active Substance: ASPIRIN

REACTIONS (2)
  - Traumatic intracranial haemorrhage [Fatal]
  - Cardiac failure congestive [Unknown]

NARRATIVE: CASE EVENT DATE: 200009
